FAERS Safety Report 20884817 (Version 1)
Quarter: 2022Q2

REPORT INFORMATION
  Report Type: Spontaneous
  Country: US (occurrence: US)
  Receive Date: 20220527
  Receipt Date: 20220527
  Transmission Date: 20220721
  Serious: Yes (Death, Hospitalization, Other)
  Sender: FDA-Public Use
  Company Number: US-G1-000549

PATIENT
  Sex: Male

DRUGS (1)
  1. COSELA [Suspect]
     Active Substance: TRILACICLIB DIHYDROCHLORIDE
     Indication: Product used for unknown indication

REACTIONS (3)
  - Death [Fatal]
  - Fall [Recovered/Resolved]
  - Brain injury [Recovered/Resolved]
